FAERS Safety Report 6769308-9 (Version None)
Quarter: 2010Q2

REPORT INFORMATION
  Report Type: 
  Country: None (occurrence: None)
  Receive Date: 20100615
  Receipt Date: 20100611
  Transmission Date: 20101027
  Serious: Yes (Life-Threatening, Other)
  Sender: FDA-Public Use
  Company Number: DE-JNJFOC-20100603354

PATIENT
  Age: 80 Year
  Sex: Male
  Weight: 51 kg

DRUGS (3)
  1. FENTANYL [Suspect]
     Indication: RIB FRACTURE
     Route: 062
  2. ARCOXIA [Suspect]
     Indication: RIB FRACTURE
     Route: 048
  3. TRAMADOL HCL [Suspect]
     Indication: RIB FRACTURE
     Route: 048

REACTIONS (7)
  - CONSTIPATION [None]
  - DEHYDRATION [None]
  - DEPRESSED LEVEL OF CONSCIOUSNESS [None]
  - SOMNOLENCE [None]
  - SUBILEUS [None]
  - URINARY TRACT INFECTION [None]
  - VOMITING [None]
